FAERS Safety Report 6719327-3 (Version None)
Quarter: 2010Q2

REPORT INFORMATION
  Report Type: 
  Country: None (occurrence: None)
  Receive Date: 20100511
  Receipt Date: 20100505
  Transmission Date: 20101027
  Serious: Yes (Life-Threatening, Hospitalization, Other)
  Sender: FDA-Public Use
  Company Number: PHHY2010DE24460

PATIENT
  Age: 87 Year
  Sex: Female
  Weight: 52 kg

DRUGS (4)
  1. CIBACEN [Suspect]
     Dosage: 2.5 MG, QD
     Route: 048
     Dates: start: 20020101, end: 20100222
  2. CIBACEN [Suspect]
     Dosage: 5 MG, QD
     Dates: start: 20100223, end: 20100225
  3. WOBENZYM N [Concomitant]
     Dosage: HALF DOSAGE FORM PER DAY
     Dates: start: 20040101, end: 20100225
  4. MAGNESIUM VERLA N DRAGEES [Concomitant]
     Dosage: 1 DOSAGE FORM PER DAY
     Dates: start: 20040101, end: 20100225

REACTIONS (13)
  - AGRANULOCYTOSIS [None]
  - ANAEMIA [None]
  - APLASTIC ANAEMIA [None]
  - AUTOIMMUNE DISORDER [None]
  - BONE MARROW FAILURE [None]
  - EPISTAXIS [None]
  - FATIGUE [None]
  - GENERAL PHYSICAL HEALTH DETERIORATION [None]
  - PANCYTOPENIA [None]
  - PETECHIAE [None]
  - PNEUMONIA [None]
  - TACHYCARDIA [None]
  - THROMBOCYTOPENIA [None]
